FAERS Safety Report 25241205 (Version 4)
Quarter: 2025Q2

REPORT INFORMATION
  Report Type: Spontaneous
  Country: CO (occurrence: CO)
  Receive Date: 20250425
  Receipt Date: 20250606
  Transmission Date: 20250716
  Serious: No
  Sender: PFIZER
  Company Number: CO-PFIZER INC-PV202500049878

PATIENT
  Age: 10 Year
  Sex: Female

DRUGS (2)
  1. GENOTROPIN [Suspect]
     Active Substance: SOMATROPIN
     Indication: Short stature
     Dosage: 1.2 MG, DAILY
     Dates: start: 202408
  2. TRIPTORELIN [Suspect]
     Active Substance: TRIPTORELIN
     Indication: Short stature

REACTIONS (6)
  - Device use issue [Unknown]
  - Device use error [Not Recovered/Not Resolved]
  - Device defective [Not Recovered/Not Resolved]
  - Device leakage [Not Recovered/Not Resolved]
  - Device mechanical issue [Not Recovered/Not Resolved]
  - Off label use [Unknown]

NARRATIVE: CASE EVENT DATE: 20240601
